FAERS Safety Report 9990791 (Version 1)
Quarter: 2014Q1

REPORT INFORMATION
  Report Type: Spontaneous
  Country: US (occurrence: None)
  Receive Date: 20140307
  Receipt Date: 20140307
  Transmission Date: 20141002
  Serious: No
  Sender: FDA-Public Use
  Company Number: None

PATIENT
  Sex: 0

DRUGS (2)
  1. CRESTOR [Suspect]
  2. FENOFIBRATE [Suspect]

REACTIONS (6)
  - Myopathy [None]
  - Joint dislocation [None]
  - Soft tissue disorder [None]
  - Asthenia [None]
  - Muscle injury [None]
  - Muscle rupture [None]
